FAERS Safety Report 9841035 (Version 1)
Quarter: 2014Q1

REPORT INFORMATION
  Report Type: Report from Study
  Country: GR (occurrence: GR)
  Receive Date: 20140124
  Receipt Date: 20140124
  Transmission Date: 20141002
  Serious: Yes (Death, Other)
  Sender: FDA-Public Use
  Company Number: GR-ASTELLAS-2014US000789

PATIENT
  Age: 76 Year
  Sex: Male

DRUGS (5)
  1. ERLOTINIB TABLET [Suspect]
     Indication: LUNG ADENOCARCINOMA
     Dosage: 150 MG, UID/QD
     Route: 048
     Dates: start: 20130214
  2. BEVACIZUMAB [Suspect]
     Indication: LUNG ADENOCARCINOMA
     Dosage: 1000 MG, 1 IN 21 D, TOTAL THREE CYCLE
     Route: 042
     Dates: start: 20120625
  3. BEVACIZUMAB [Suspect]
     Dosage: 1000 MG, 1 IN 21 D, TOTAL THREE CYCLE
     Route: 042
     Dates: start: 20121206, end: 20130114
  4. CARBOPLATIN [Concomitant]
     Indication: NON-SMALL CELL LUNG CANCER
     Dosage: 300 MG, UNKNOWN/D
     Route: 042
     Dates: start: 20120625, end: 20131101
  5. PEMETREXED [Concomitant]
     Indication: NON-SMALL CELL LUNG CANCER
     Dosage: 700 MG, UNKNOWN/D
     Route: 042
     Dates: start: 20120625, end: 20121101

REACTIONS (8)
  - Death [Fatal]
  - Pancytopenia [Unknown]
  - Performance status decreased [Unknown]
  - Therapy responder [Unknown]
  - Catabolic state [Unknown]
  - Muscular weakness [Unknown]
  - Decreased appetite [Unknown]
  - Asthenia [Unknown]
